FAERS Safety Report 16812252 (Version 2)
Quarter: 2019Q4

REPORT INFORMATION
  Report Type: Report from Study
  Country: US (occurrence: US)
  Receive Date: 20190916
  Receipt Date: 20191008
  Transmission Date: 20200122
  Serious: Yes (Other)
  Sender: FDA-Public Use
  Company Number: US-SHIRE-US201928020

PATIENT
  Age: 46 Year
  Sex: Female

DRUGS (2)
  1. GATTEX [Suspect]
     Active Substance: TEDUGLUTIDE\WATER
     Dosage: 0.36 MILLILITER, 1X/DAY:QD
     Route: 058
     Dates: start: 20190817
  2. GATTEX [Suspect]
     Active Substance: TEDUGLUTIDE\WATER
     Indication: PRODUCT USED FOR UNKNOWN INDICATION
     Dosage: 0.36 MILLILITER, 1X/DAY:QD
     Route: 058
     Dates: start: 20190817

REACTIONS (8)
  - Abdominal pain upper [Not Recovered/Not Resolved]
  - Abdominal pain [Not Recovered/Not Resolved]
  - Stoma complication [Not Recovered/Not Resolved]
  - Injection site mass [Recovered/Resolved]
  - Faeces soft [Not Recovered/Not Resolved]
  - Injection site bruising [Recovering/Resolving]
  - Crohn^s disease [Not Recovered/Not Resolved]
  - Product dose omission [Recovered/Resolved]

NARRATIVE: CASE EVENT DATE: 20190817
